FAERS Safety Report 5849621-X (Version None)
Quarter: 2008Q3

REPORT INFORMATION
  Report Type: 
  Country: None (occurrence: None)
  Receive Date: 20080819
  Receipt Date: 20080808
  Transmission Date: 20090109
  Serious: Yes (Hospitalization)
  Sender: FDA-Public Use
  Company Number: GB-ROCHE-580062

PATIENT

DRUGS (3)
  1. CLONAZEPAM [Suspect]
     Indication: DRUG USE FOR UNKNOWN INDICATION
     Route: 064
  2. CARBAMAZEPINE [Suspect]
     Indication: DRUG USE FOR UNKNOWN INDICATION
     Route: 064
  3. ZONISAMIDE [Suspect]
     Indication: DRUG USE FOR UNKNOWN INDICATION
     Route: 064

REACTIONS (4)
  - DRUG EXPOSURE DURING PREGNANCY [None]
  - INTRA-UTERINE DEATH [None]
  - PREMATURE BABY [None]
  - TWIN PREGNANCY [None]
